FAERS Safety Report 5151212-3 (Version None)
Quarter: 2006Q4

REPORT INFORMATION
  Report Type: 
  Country: None (occurrence: None)
  Receive Date: 20061115
  Receipt Date: 20061108
  Transmission Date: 20070319
  Serious: Yes (Other)
  Sender: FDA-Public Use
  Company Number: GB-ALLERGAN-0607268US

PATIENT
  Sex: Male

DRUGS (2)
  1. PREDNISOLONE ACETATE [Suspect]
     Indication: DRUG USE FOR UNKNOWN INDICATION
     Dosage: UNK, QID
     Dates: start: 20050601, end: 20051101
  2. TIMOLOL MALEATE SOL UNSPECIFID [Suspect]
     Indication: HERPES ZOSTER
     Dosage: UNK, BID
     Dates: start: 20050501, end: 20051101

REACTIONS (3)
  - BLINDNESS [None]
  - BLOOD PHOSPHORUS INCREASED [None]
  - CORNEAL DEPOSITS [None]
